FAERS Safety Report 7605737-9 (Version None)
Quarter: 2011Q3

REPORT INFORMATION
  Report Type: 
  Country: None (occurrence: None)
  Receive Date: 20110713
  Receipt Date: 20110704
  Transmission Date: 20111222
  Serious: Yes (Other)
  Sender: FDA-Public Use
  Company Number: JP-NOVOPROD-331211

PATIENT
  Age: 10 Year
  Sex: Male

DRUGS (3)
  1. NORDITROPIN [Suspect]
     Indication: PRODUCT USED FOR UNKNOWN INDICATION
     Dosage: 0.025 MG/KG/DAY
  2. SOMATORELIN [Concomitant]
  3. ARGININE [Concomitant]

REACTIONS (1)
  - CRANIOPHARYNGIOMA [None]
